FAERS Safety Report 19829164 (Version 1)
Quarter: 2021Q3

REPORT INFORMATION
  Report Type: Spontaneous
  Country: FR (occurrence: FR)
  Receive Date: 20210914
  Receipt Date: 20210914
  Transmission Date: 20211014
  Serious: Yes (Hospitalization)
  Sender: FDA-Public Use
  Company Number: FR-MYLANLABS-2021M1061546

PATIENT
  Age: 24 Year
  Sex: Male
  Weight: 53 kg

DRUGS (11)
  1. DEPO?MEDROL [Suspect]
     Active Substance: METHYLPREDNISOLONE ACETATE
     Dosage: 40 MILLIGRAM, (EVERY 6 DAYS)
     Route: 042
     Dates: start: 20210225, end: 20210302
  2. DEPO?MEDROL [Suspect]
     Active Substance: METHYLPREDNISOLONE ACETATE
     Indication: ACUTE LYMPHOCYTIC LEUKAEMIA
     Dosage: 40 MILLIGRAM, Q3.5D
     Route: 042
     Dates: start: 20210308, end: 20210325
  3. METHOTREXATE. [Suspect]
     Active Substance: METHOTREXATE
     Indication: ACUTE LYMPHOCYTIC LEUKAEMIA
     Dosage: 15 MILLIGRAM, Q3.5D
     Route: 042
     Dates: start: 20210308, end: 20210325
  4. CYTARABINE. [Suspect]
     Active Substance: CYTARABINE
     Indication: ACUTE LYMPHOCYTIC LEUKAEMIA
     Dosage: 40 MILLIGRAM, (EVERY 6 DAYS)
     Route: 042
     Dates: start: 20210225, end: 20210302
  5. KIDROLASE [Suspect]
     Active Substance: ASPARAGINASE
     Indication: ACUTE LYMPHOCYTIC LEUKAEMIA
     Dosage: 10680 INTERNATIONAL UNIT, TOTAL
     Route: 042
     Dates: start: 20210327, end: 20210327
  6. DAUNORUBICINE [Suspect]
     Active Substance: DAUNORUBICIN
     Indication: ACUTE LYMPHOCYTIC LEUKAEMIA
     Dosage: 89 MILLIGRAM, Q3D
     Route: 042
     Dates: start: 20210308, end: 20210310
  7. CYCLOPHOSPHAMIDE. [Suspect]
     Active Substance: CYCLOPHOSPHAMIDE
     Indication: ACUTE LYMPHOCYTIC LEUKAEMIA
     Dosage: 1335 MILLIGRAM, (EVERY 15 DAYS)
     Route: 042
     Dates: start: 20210308, end: 20210322
  8. DAUNORUBICINE [Suspect]
     Active Substance: DAUNORUBICIN
     Dosage: 53 MILLIGRAM, (EVERY 15 DAYS)
     Route: 042
     Dates: start: 20210308, end: 20210322
  9. CYTARABINE. [Suspect]
     Active Substance: CYTARABINE
     Dosage: 40 MILLIGRAM, Q3.5D
     Route: 042
     Dates: start: 20210308, end: 20210325
  10. METHOTREXATE. [Suspect]
     Active Substance: METHOTREXATE
     Dosage: 15 MILLIGRAM , (EVERY 6 DAYS)
     Route: 042
     Dates: start: 20210225, end: 20210302
  11. PREDNISONE. [Suspect]
     Active Substance: PREDNISONE
     Indication: ACUTE LYMPHOCYTIC LEUKAEMIA
     Dosage: 107 MILLIGRAM, Q2W
     Route: 048
     Dates: start: 20210308, end: 20210321

REACTIONS (2)
  - Posterior reversible encephalopathy syndrome [Recovering/Resolving]
  - Myocardial oedema [Recovered/Resolved]

NARRATIVE: CASE EVENT DATE: 20210404
